FAERS Safety Report 18272814 (Version 1)
Quarter: 2020Q3

REPORT INFORMATION
  Report Type: Spontaneous
  Country: AU (occurrence: AU)
  Receive Date: 20200916
  Receipt Date: 20200916
  Transmission Date: 20201103
  Serious: Yes (Hospitalization, Other)
  Sender: FDA-Public Use
  Company Number: AU-009507513-2009AUS003819

PATIENT
  Age: 76 Year
  Sex: Female

DRUGS (1)
  1. FOSAMAX PLUS D [Suspect]
     Active Substance: ALENDRONATE SODIUM\CHOLECALCIFEROL
     Indication: OSTEOPOROSIS
     Dosage: UNK
     Dates: start: 1993

REACTIONS (10)
  - Pain [Unknown]
  - Feeling abnormal [Unknown]
  - Femur fracture [Unknown]
  - Insomnia [Unknown]
  - Therapeutic response decreased [Unknown]
  - Osteoporosis [Unknown]
  - Nightmare [Unknown]
  - Crying [Unknown]
  - Fall [Unknown]
  - Femur fracture [Unknown]

NARRATIVE: CASE EVENT DATE: 20151016
